FAERS Safety Report 17811228 (Version 1)
Quarter: 2020Q2

REPORT INFORMATION
  Report Type: Spontaneous
  Country: US (occurrence: US)
  Receive Date: 20200520
  Receipt Date: 20200520
  Transmission Date: 20200714
  Serious: Yes (Life-Threatening, Hospitalization)
  Sender: FDA-Public Use
  Company Number: None

PATIENT
  Age: 69 Year
  Sex: Male
  Weight: 98 kg

DRUGS (1)
  1. REMICADE [Suspect]
     Active Substance: INFLIXIMAB
     Indication: RHEUMATOID ARTHRITIS
     Dosage: ?          OTHER FREQUENCY:EVERY 2 WEEKS;?
     Route: 042
     Dates: start: 20200421, end: 20200505

REACTIONS (10)
  - Pruritus [None]
  - Hypoxia [None]
  - Dyspnoea [None]
  - Chest discomfort [None]
  - Nausea [None]
  - Throat tightness [None]
  - Wheezing [None]
  - Anaphylactic reaction [None]
  - Urticaria [None]
  - Hypertension [None]

NARRATIVE: CASE EVENT DATE: 20200505
